FAERS Safety Report 7569450-9 (Version None)
Quarter: 2011Q2

REPORT INFORMATION
  Report Type: 
  Country: None (occurrence: None)
  Receive Date: 20110624
  Receipt Date: 20110614
  Transmission Date: 20111010
  Serious: Yes (Hospitalization)
  Sender: FDA-Public Use
  Company Number: US-BIOGENIDEC-2011BI021332

PATIENT
  Age: 35 Year
  Sex: Male

DRUGS (1)
  1. TYSABRI [Suspect]
     Indication: MULTIPLE SCLEROSIS
     Route: 042
     Dates: start: 20091204

REACTIONS (7)
  - HEAD INJURY [None]
  - CONCUSSION [None]
  - VITAMIN B12 DEFICIENCY [None]
  - SYNCOPE [None]
  - POST CONCUSSION SYNDROME [None]
  - INJURY [None]
  - LOSS OF CONSCIOUSNESS [None]
